FAERS Safety Report 7204540-1 (Version None)
Quarter: 2010Q4

REPORT INFORMATION
  Report Type: 
  Country: None (occurrence: None)
  Receive Date: 20101230
  Receipt Date: 20101217
  Transmission Date: 20110411
  Serious: Yes (Other)
  Sender: FDA-Public Use
  Company Number: PHHY2010BR86103

PATIENT
  Age: 45 Year
  Sex: Female

DRUGS (3)
  1. DIOVAN TRIPLE [Suspect]
     Dosage: 160/12.5/5 MG
  2. CAPTOPRIL [Concomitant]
  3. RIVOTRIL [Concomitant]

REACTIONS (4)
  - BLOOD PRESSURE INCREASED [None]
  - DRUG DOSE OMISSION [None]
  - HYPERTENSIVE CRISIS [None]
  - NERVE INJURY [None]
